FAERS Safety Report 20789789 (Version 1)
Quarter: 2022Q2

REPORT INFORMATION
  Report Type: Spontaneous
  Country: US (occurrence: None)
  Receive Date: 20220504
  Receipt Date: 20220504
  Transmission Date: 20220720
  Serious: Yes (Death)
  Sender: FDA-Public Use
  Company Number: None

PATIENT
  Age: 34 Year
  Sex: Male

DRUGS (13)
  1. TEMOZOLOMIDE [Suspect]
     Active Substance: TEMOZOLOMIDE
     Indication: Small cell lung cancer
     Dosage: OTHER FREQUENCY : QDX21D;?
     Route: 048
     Dates: start: 20220309, end: 202204
  2. MORPHINE SUL [Concomitant]
  3. OXYCODONE [Concomitant]
     Active Substance: OXYCODONE
  4. PROCHLORPERAZINE [Concomitant]
     Active Substance: PROCHLORPERAZINE
  5. PROMETHAZINE [Concomitant]
     Active Substance: PROMETHAZINE HYDROCHLORIDE
  6. CLARITIN [Concomitant]
     Active Substance: LORATADINE
  7. ESCITALOPRAM [Concomitant]
     Active Substance: ESCITALOPRAM OXALATE
  8. LEVOTHYROXINE [Concomitant]
     Active Substance: LEVOTHYROXINE
  9. OLANZAPINE [Concomitant]
     Active Substance: OLANZAPINE
  10. PEPCID [Concomitant]
     Active Substance: FAMOTIDINE
  11. SENOKOT [Concomitant]
     Active Substance: SENNOSIDES
  12. BENZONATATE [Concomitant]
     Active Substance: BENZONATATE
  13. DEXAMETHASONE [Concomitant]
     Active Substance: DEXAMETHASONE

REACTIONS (1)
  - Death [None]

NARRATIVE: CASE EVENT DATE: 20220412
